FAERS Safety Report 4319658-0 (Version None)
Quarter: 2004Q1

REPORT INFORMATION
  Report Type: 
  Country: None (occurrence: None)
  Receive Date: 20040316
  Receipt Date: 20040302
  Transmission Date: 20041129
  Serious: No
  Sender: FDA-Public Use
  Company Number: 04H-163-0253064-00

PATIENT
  Age: 80 Year
  Sex: Male

DRUGS (18)
  1. SODIUM CHLORIDE [Suspect]
     Indication: MEDICATION ERROR
     Dosage: 100 ML, ONCE, INTRAVENOUS
     Route: 042
     Dates: start: 20040205, end: 20040205
  2. SODIUM CHLORIDE [Suspect]
     Indication: MEDICATION ERROR
     Dosage: 100 ML, ONCE, INTRAVENOUS
     Route: 042
     Dates: start: 20040205, end: 20040205
  3. DILTIAZEM HYDROCHLORIDE [Suspect]
     Dosage: SEE IMAGE
     Route: 042
     Dates: start: 20040205, end: 20040205
  4. DILTIAZEM HYDROCHLORIDE [Suspect]
     Dosage: SEE IMAGE
     Route: 042
     Dates: start: 20040205, end: 20040205
  5. SIMVASTATIN [Concomitant]
  6. UREA HYDROGEN PEROXIDE [Concomitant]
  7. RISPERIDONE [Concomitant]
  8. FOLIC ACID [Concomitant]
  9. TOCOPHEROL CONCENTRATE CAP [Concomitant]
  10. ASPIRIN [Concomitant]
  11. DONEPEZIL HCL [Concomitant]
  12. ATENOLOL [Concomitant]
  13. TIMOLOL MALEATE [Concomitant]
  14. NALOXONE HCL [Concomitant]
  15. THIAMINE [Concomitant]
  16. DEXTROSE 50% [Concomitant]
  17. DIGOXIN [Concomitant]
  18. SODIUM CHLORIDE INJ [Concomitant]

REACTIONS (5)
  - BLOOD PRESSURE DIASTOLIC DECREASED [None]
  - HEART RATE DECREASED [None]
  - HEART RATE INCREASED [None]
  - MEDICATION ERROR [None]
  - VENTRICULAR TACHYCARDIA [None]
